FAERS Safety Report 15661066 (Version 2)
Quarter: 2020Q3

REPORT INFORMATION
  Report Type: Spontaneous
  Country: US (occurrence: US)
  Receive Date: 20181127
  Receipt Date: 20200828
  Transmission Date: 20201102
  Serious: Yes (Other)
  Sender: FDA-Public Use
  Company Number: US-GILEAD-2018-0376056

PATIENT
  Age: 58 Year
  Sex: Male
  Weight: 117.91 kg

DRUGS (43)
  1. SYMTUZA [Concomitant]
     Active Substance: COBICISTAT\DARUNAVIR\EMTRICITABINE\TENOFOVIR ALAFENAMIDE
  2. OMEPRAZOLE. [Concomitant]
     Active Substance: OMEPRAZOLE
  3. METRONIDAZOLE. [Concomitant]
     Active Substance: METRONIDAZOLE
  4. MELOXICAM. [Concomitant]
     Active Substance: MELOXICAM
  5. OMEGA 3 FISH OIL [FISH OIL] [Concomitant]
  6. DEXLANSOPRAZOLE [Concomitant]
     Active Substance: DEXLANSOPRAZOLE
  7. FLUCONAZOLE. [Concomitant]
     Active Substance: FLUCONAZOLE
  8. HYDROCORTISONE ACE [Concomitant]
  9. ALLEGRA?D [Concomitant]
     Active Substance: FEXOFENADINE\PSEUDOEPHEDRINE
  10. SIMVASTATIN. [Concomitant]
     Active Substance: SIMVASTATIN
  11. FAMOTIDINE. [Concomitant]
     Active Substance: FAMOTIDINE
  12. LISINOPRIL. [Concomitant]
     Active Substance: LISINOPRIL
  13. FUROSEMIDE. [Concomitant]
     Active Substance: FUROSEMIDE
  14. BROMPHEN [BROMPHENIRAMINE MALEATE] [Concomitant]
  15. AMIODARONE [Concomitant]
     Active Substance: AMIODARONE
  16. ATORVASTATIN [Concomitant]
     Active Substance: ATORVASTATIN
  17. IMIQUIMOD. [Concomitant]
     Active Substance: IMIQUIMOD
  18. TRAMADOL. [Concomitant]
     Active Substance: TRAMADOL
  19. NASONEX [Concomitant]
     Active Substance: MOMETASONE FUROATE
  20. DESCOVY [Concomitant]
     Active Substance: EMTRICITABINE\TENOFOVIR ALAFENAMIDE FUMARATE
  21. ESOMEPRAZOLE MAGNESIUM. [Concomitant]
     Active Substance: ESOMEPRAZOLE MAGNESIUM
  22. BIKTARVY [Concomitant]
     Active Substance: BICTEGRAVIR SODIUM\EMTRICITABINE\TENOFOVIR ALAFENAMIDE FUMARATE
  23. GENVOYA [Concomitant]
     Active Substance: COBICISTAT\ELVITEGRAVIR\EMTRICITABINE\TENOFOVIR ALAFENAMIDE FUMARATE
  24. RANITIDINE. [Concomitant]
     Active Substance: RANITIDINE
  25. NEXIUM SANDOZ [Concomitant]
  26. DICYCLOMINE [DICYCLOVERINE HYDROCHLORIDE] [Concomitant]
  27. ZETIA [Concomitant]
     Active Substance: EZETIMIBE
  28. ALDARA [Concomitant]
     Active Substance: IMIQUIMOD
  29. ATARAX [Concomitant]
     Active Substance: HYDROXYZINE HYDROCHLORIDE
  30. STRIBILD [Suspect]
     Active Substance: COBICISTAT\ELVITEGRAVIR\EMTRICITABINE\TENOFOVIR DISOPROXIL FUMARATE
     Indication: HIV INFECTION
     Dosage: UNK
     Route: 048
     Dates: start: 2014, end: 2018
  31. STRIBILD [Suspect]
     Active Substance: COBICISTAT\ELVITEGRAVIR\EMTRICITABINE\TENOFOVIR DISOPROXIL FUMARATE
     Dosage: UNK
     Route: 048
     Dates: start: 2012, end: 20180212
  32. DOXYCYCLINE. [Concomitant]
     Active Substance: DOXYCYCLINE
  33. IFEREX [Concomitant]
  34. AZITHROMYCIN ANHYDROUS. [Concomitant]
     Active Substance: AZITHROMYCIN ANHYDROUS
  35. CIPROFLOXACIN. [Concomitant]
     Active Substance: CIPROFLOXACIN
  36. SIMETHICONE (DIMETHICONE) [Concomitant]
     Active Substance: DIMETHICONE
  37. ATOVAQUONE. [Concomitant]
     Active Substance: ATOVAQUONE
  38. ONDANSETRAN [Concomitant]
     Active Substance: ONDANSETRON HYDROCHLORIDE
  39. LOPERAMIDE [Concomitant]
     Active Substance: LOPERAMIDE
  40. BACTRIM [Concomitant]
     Active Substance: SULFAMETHOXAZOLE\TRIMETHOPRIM
  41. ZYRTEC [Concomitant]
     Active Substance: CETIRIZINE HYDROCHLORIDE
  42. PREZCOBIX [Concomitant]
     Active Substance: COBICISTAT\DARUNAVIR ETHANOLATE
  43. DEXAMETHASONE. [Concomitant]
     Active Substance: DEXAMETHASONE

REACTIONS (10)
  - Fracture [Not Recovered/Not Resolved]
  - Emotional distress [Not Recovered/Not Resolved]
  - Bone density decreased [Not Recovered/Not Resolved]
  - Anhedonia [Not Recovered/Not Resolved]
  - Economic problem [Unknown]
  - Pain [Not Recovered/Not Resolved]
  - Fall [Not Recovered/Not Resolved]
  - Osteoporosis [Not Recovered/Not Resolved]
  - Anxiety [Not Recovered/Not Resolved]
  - Depression [Not Recovered/Not Resolved]

NARRATIVE: CASE EVENT DATE: 201603
